FAERS Safety Report 7809031-2 (Version None)
Quarter: 2011Q4

REPORT INFORMATION
  Report Type: 
  Country: None (occurrence: None)
  Receive Date: 20111012
  Receipt Date: 20111012
  Transmission Date: 20120403
  Serious: No
  Sender: FDA-Public Use
  Company Number: None

PATIENT
  Age: 61 Year
  Sex: Female
  Weight: 61.234 kg

DRUGS (2)
  1. ACTONEL [Concomitant]
     Indication: OSTEOPOROSIS
     Dosage: 35MG
     Route: 048
     Dates: start: 20050301, end: 20051101
  2. ACTONEL [Suspect]
     Indication: OSTEOPENIA
     Dosage: 35MG
     Route: 048
     Dates: start: 20030301, end: 20030801

REACTIONS (16)
  - ECZEMA [None]
  - CONTUSION [None]
  - PH URINE DECREASED [None]
  - TERMINAL INSOMNIA [None]
  - WEIGHT DECREASED [None]
  - NECK PAIN [None]
  - MUSCULOSKELETAL STIFFNESS [None]
  - NAUSEA [None]
  - PRURITUS [None]
  - CYSTITIS [None]
  - ARTHRALGIA [None]
  - MUSCULAR WEAKNESS [None]
  - HEADACHE [None]
  - FATIGUE [None]
  - MUSCLE SPASMS [None]
  - ABDOMINAL DISCOMFORT [None]
